FAERS Safety Report 6379767-1 (Version None)
Quarter: 2009Q3

REPORT INFORMATION
  Report Type: 
  Country: None (occurrence: None)
  Receive Date: 20090923
  Receipt Date: 20090923
  Transmission Date: 20100115
  Serious: Yes (Other)
  Sender: FDA-Public Use
  Company Number: None

PATIENT
  Sex: Female
  Weight: 43.0917 kg

DRUGS (1)
  1. OXCARBAZEPINE [Suspect]
     Indication: EPILEPSY
     Dosage: 45 MG 1/DAILY (AM) ORAL; 375/MG 1/DAILY (PM) ORAL
     Route: 048
     Dates: start: 20071213, end: 20071216

REACTIONS (6)
  - CONVULSION [None]
  - DIZZINESS [None]
  - HEART RATE INCREASED [None]
  - PRODUCT SUBSTITUTION ISSUE [None]
  - TINNITUS [None]
  - VISION BLURRED [None]
